FAERS Safety Report 5172930-7 (Version None)
Quarter: 2006Q4

REPORT INFORMATION
  Report Type: 
  Country: None (occurrence: None)
  Receive Date: 20061213
  Receipt Date: 20060718
  Transmission Date: 20070319
  Serious: No
  Sender: FDA-Public Use
  Company Number: US-AMGEN-KDL186709

PATIENT
  Sex: Female

DRUGS (3)
  1. ENBREL [Suspect]
     Indication: RHEUMATOID ARTHRITIS
     Route: 058
     Dates: start: 20060614
  2. METHOTREXATE [Concomitant]
     Dates: start: 20040718
  3. HYDROXYCHLOROQUINE SULFATE [Concomitant]
     Dates: start: 20040718

REACTIONS (1)
  - INJECTION SITE REACTION [None]
